FAERS Safety Report 8789044 (Version 2)
Quarter: 2012Q4

REPORT INFORMATION
  Report Type: 
  Country: JP (occurrence: JP)
  Receive Date: 20120917
  Receipt Date: 20121210
  Transmission Date: 20130627
  Serious: Yes (Other)
  Sender: FDA-Public Use
  Company Number: JP-009507513-1207JPN007396

PATIENT
  Age: 68 Year
  Sex: Female
  Weight: 42 kg

DRUGS (22)
  1. PEGINTRON [Suspect]
     Indication: CHRONIC HEPATITIS C
     Dosage: 1.5 Microgram per kilogram, qw
     Route: 058
     Dates: start: 20120514, end: 20120603
  2. PEGINTRON [Suspect]
     Dosage: 1.5 Microgram per kilogram, qw
     Route: 058
     Dates: start: 20120607
  3. REBETOL [Suspect]
     Indication: CHRONIC HEPATITIS C
     Dosage: 400 mg, qd
     Route: 048
     Dates: start: 20120514, end: 20120530
  4. REBETOL [Suspect]
     Dosage: 200 mg, qd
     Route: 048
     Dates: start: 20120531, end: 20120603
  5. REBETOL [Suspect]
     Dosage: 200 mg, qd
     Route: 048
     Dates: start: 20120606
  6. TELAVIC [Suspect]
     Indication: CHRONIC HEPATITIS C
     Dosage: 1500 mg, qd
     Route: 048
     Dates: start: 20120514, end: 20120603
  7. TELAVIC [Suspect]
     Dosage: 1500 mg, qd
     Route: 048
     Dates: start: 20120606, end: 20120625
  8. TELAVIC [Suspect]
     Dosage: 500 mg, qd
     Route: 048
     Dates: start: 20120628, end: 20120705
  9. CO DIO [Concomitant]
     Indication: HYPERTENSION
     Dosage: 1 DF, qd
     Route: 048
  10. SALOBEL [Concomitant]
     Indication: HYPERURICAEMIA
     Dosage: 1T(100)
     Route: 048
     Dates: end: 20120522
  11. SALOBEL [Concomitant]
     Dosage: 2T(100)
     Route: 048
     Dates: start: 20120523
  12. SALOBEL [Concomitant]
     Indication: PROPHYLAXIS
     Dosage: 100 mg, qd
  13. VOLTAREN [Concomitant]
     Indication: PYREXIA
     Dosage: 1T(25)/day, prn
     Route: 048
     Dates: start: 20120516
  14. VOLTAREN [Concomitant]
     Indication: HEADACHE
     Dosage: 25 mg, qd
  15. PARIET [Concomitant]
     Indication: GASTRITIS
     Dosage: 1T(10)
     Route: 048
     Dates: start: 20120602
  16. ULCERLMIN [Concomitant]
     Indication: GASTRITIS
     Dosage: 4 pack
     Route: 048
     Dates: start: 20120602, end: 20120608
  17. ULCERLMIN [Concomitant]
     Dosage: 4 g, qd
     Route: 048
  18. ALLOID G [Concomitant]
     Indication: GASTRITIS
     Dosage: 80 ml, qd
     Route: 048
     Dates: start: 20120602
  19. RABEPRAZOLE SODIUM [Concomitant]
     Indication: GASTRITIS
     Dosage: 10 mg, qd
     Route: 048
  20. RABEPRAZOLE SODIUM [Concomitant]
     Indication: OESOPHAGITIS
  21. FEROTYM [Concomitant]
     Indication: ANAEMIA
     Dosage: 50 mg, qd
     Route: 048
  22. [COMPOSITION UNSPECIFIED] [Concomitant]
     Indication: INSOMNIA
     Dosage: 5 mg, prn

REACTIONS (5)
  - Anaemia [Recovering/Resolving]
  - Anaemia [Not Recovered/Not Resolved]
  - Anaemia [Recovering/Resolving]
  - Anaemia [Recovering/Resolving]
  - Anaemia [Recovering/Resolving]
